FAERS Safety Report 16417073 (Version 1)
Quarter: 2019Q2

REPORT INFORMATION
  Report Type: Spontaneous
  Country: GB (occurrence: GB)
  Receive Date: 20190611
  Receipt Date: 20190611
  Transmission Date: 20190711
  Serious: Yes (Hospitalization)
  Sender: FDA-Public Use
  Company Number: GB-ASTRAZENECA-2019SE84098

PATIENT
  Sex: Female

DRUGS (2)
  1. DAPAGLIFLOZIN. [Suspect]
     Active Substance: DAPAGLIFLOZIN
     Indication: TYPE 1 DIABETES MELLITUS
     Dosage: 10.0MG UNKNOWN
     Route: 048
  2. BASAL INSULIN [Concomitant]
     Active Substance: INSULIN HUMAN

REACTIONS (4)
  - Euglycaemic diabetic ketoacidosis [Unknown]
  - Product use in unapproved indication [Unknown]
  - Off label use [Unknown]
  - Abdominal discomfort [Unknown]
